FAERS Safety Report 17445684 (Version 1)
Quarter: 2020Q1

REPORT INFORMATION
  Report Type: Spontaneous
  Country: US (occurrence: US)
  Receive Date: 20200221
  Receipt Date: 20200221
  Transmission Date: 20200409
  Serious: No
  Sender: FDA-Public Use
  Company Number: US-ASTRAZENECA-2020SE13962

PATIENT
  Sex: Male

DRUGS (2)
  1. CRESTOR GENERIC [Suspect]
     Active Substance: ROSUVASTATIN CALCIUM
     Route: 048
  2. CRESTOR [Suspect]
     Active Substance: ROSUVASTATIN CALCIUM
     Indication: HYPERLIPIDAEMIA
     Route: 048

REACTIONS (5)
  - Product substitution issue [Unknown]
  - Myalgia [Unknown]
  - Muscle spasms [Unknown]
  - Feeling abnormal [Unknown]
  - Arthralgia [Unknown]
